FAERS Safety Report 18716392 (Version 1)
Quarter: 2021Q1

REPORT INFORMATION
  Report Type: Spontaneous
  Country: US (occurrence: US)
  Receive Date: 20210107
  Receipt Date: 20210107
  Transmission Date: 20210419
  Serious: Yes (Hospitalization, Other)
  Sender: FDA-Public Use
  Company Number: None

PATIENT
  Age: 60 Year
  Sex: Female

DRUGS (10)
  1. ZOLPIDEM [Concomitant]
     Active Substance: ZOLPIDEM TARTRATE
  2. FLUCONAZOLE. [Concomitant]
     Active Substance: FLUCONAZOLE
  3. GABAPENTIN. [Concomitant]
     Active Substance: GABAPENTIN
  4. XELJANZ XR [Suspect]
     Active Substance: TOFACITINIB CITRATE
     Indication: SPONDYLOARTHROPATHY
     Route: 048
     Dates: start: 20180112
  5. OXYCODONE [Concomitant]
     Active Substance: OXYCODONE
  6. ONDANSETRON [Concomitant]
     Active Substance: ONDANSETRON
  7. FOLIC ACID. [Concomitant]
     Active Substance: FOLIC ACID
  8. CYCLOBENZAPR [Concomitant]
     Active Substance: CYCLOBENZAPRINE
  9. POT CHLORIDE [Concomitant]
     Active Substance: POTASSIUM CHLORIDE
  10. DIAZEPAM. [Concomitant]
     Active Substance: DIAZEPAM

REACTIONS (2)
  - Therapy interrupted [None]
  - Surgery [None]

NARRATIVE: CASE EVENT DATE: 20210107
